FAERS Safety Report 10226371 (Version 1)
Quarter: 2014Q2

REPORT INFORMATION
  Report Type: Spontaneous
  Country: CA (occurrence: CA)
  Receive Date: 20140609
  Receipt Date: 20140609
  Transmission Date: 20141212
  Serious: Yes (Other)
  Sender: FDA-Public Use
  Company Number: PHHY2014CA064622

PATIENT
  Age: 18 Year
  Sex: Male

DRUGS (2)
  1. CAMBIA [Suspect]
     Indication: MIGRAINE
     Dosage: 1 DF, PER DAY X 2 WEEKS
     Route: 048
     Dates: start: 20140206
  2. CAMBIA [Suspect]
     Dosage: UNK UKN, PRN
     Route: 048
     Dates: end: 20140402

REACTIONS (2)
  - Suicidal ideation [Recovered/Resolved]
  - Depression [Recovered/Resolved]
